FAERS Safety Report 8035880-4 (Version None)
Quarter: 2012Q1

REPORT INFORMATION
  Report Type: 
  Country: None (occurrence: None)
  Receive Date: 20120111
  Receipt Date: 20120111
  Transmission Date: 20120608
  Serious: Yes (Life-Threatening, Hospitalization)
  Sender: FDA-Public Use
  Company Number: None

PATIENT
  Sex: Male
  Weight: 83 kg

DRUGS (8)
  1. METOPROLOL [Concomitant]
  2. NEXIUM [Concomitant]
  3. THEOPHYLLINE [Concomitant]
  4. LANTUS [Concomitant]
  5. ZAROXOLYN [Concomitant]
  6. INDOCIN [Concomitant]
  7. PRADAXA [Suspect]
     Indication: ATRIAL FIBRILLATION
     Dosage: 150 MG
     Route: 048
  8. LASIX [Concomitant]

REACTIONS (8)
  - URINARY BLADDER HAEMORRHAGE [None]
  - DIALYSIS [None]
  - HAEMATURIA [None]
  - HAEMORRHAGE [None]
  - RECTAL HAEMORRHAGE [None]
  - RENAL FAILURE ACUTE [None]
  - DISSEMINATED INTRAVASCULAR COAGULATION [None]
  - PULMONARY HAEMORRHAGE [None]
